FAERS Safety Report 5571064-7 (Version None)
Quarter: 2007Q4

REPORT INFORMATION
  Report Type: 
  Country: None (occurrence: None)
  Receive Date: 20071221
  Receipt Date: 20071218
  Transmission Date: 20080405
  Serious: Yes (Life-Threatening)
  Sender: FDA-Public Use
  Company Number: FR-PURDUE-GBR_2007_0003565

PATIENT
  Age: 58 Year
  Sex: Female

DRUGS (5)
  1. HYDROMORPHONE HCL [Suspect]
     Indication: PAIN
     Dosage: 8 MG, BID
     Route: 048
  2. MORPHINE SULFATE [Suspect]
     Indication: PAIN
     Dosage: 20 MG, PRN
     Route: 048
  3. XANAX [Suspect]
     Indication: ANXIETY
     Dosage: .5 MG, TID
     Route: 048
  4. HUMIRA [Suspect]
     Indication: SPONDYLOARTHROPATHY
     Route: 065
     Dates: start: 20070301
  5. AUGMENTIN '250' [Suspect]
     Indication: LUNG DISORDER
     Route: 065
     Dates: start: 20071010

REACTIONS (6)
  - COMA [None]
  - DEHYDRATION [None]
  - DIARRHOEA [None]
  - OVERDOSE [None]
  - RENAL FAILURE ACUTE [None]
  - VOMITING [None]
